FAERS Safety Report 7304311-1 (Version None)
Quarter: 2011Q1

REPORT INFORMATION
  Report Type: 
  Country: None (occurrence: None)
  Receive Date: 20110221
  Receipt Date: 20110207
  Transmission Date: 20110831
  Serious: Yes (Hospitalization, Other)
  Sender: FDA-Public Use
  Company Number: US-BAYER-201032421NA

PATIENT
  Sex: Female
  Weight: 57 kg

DRUGS (10)
  1. CEFZIL [Concomitant]
     Dosage: UNK
     Dates: end: 20091112
  2. YAZ [Suspect]
     Indication: MENORRHAGIA
  3. BENADRYL [Concomitant]
     Indication: PRURITUS
     Dosage: UNK
     Dates: start: 20091101
  4. YAZ [Suspect]
     Indication: PREMENSTRUAL SYNDROME
  5. EXTRA STRENGTH TYLENOL [Concomitant]
     Dosage: UNK
  6. MECLIZINE [Concomitant]
  7. YAZ [Suspect]
     Indication: ACNE
     Dosage: 1 TAB/DAY
     Route: 048
     Dates: start: 20090301, end: 20091101
  8. FERROUS SULFATE TAB [Concomitant]
     Indication: IRON DEFICIENCY
     Dosage: UNK
     Dates: start: 20091101
  9. XANAX [Concomitant]
  10. LEVBID [Concomitant]
     Dosage: 0.375 UNK, UNK
     Dates: start: 20091112

REACTIONS (3)
  - CHEST PAIN [None]
  - ANXIETY [None]
  - PULMONARY EMBOLISM [None]
